FAERS Safety Report 10196948 (Version 2)
Quarter: 2014Q2

REPORT INFORMATION
  Report Type: Spontaneous
  Country: JP (occurrence: JP)
  Receive Date: 20140527
  Receipt Date: 20140619
  Transmission Date: 20141212
  Serious: Yes (Other)
  Sender: FDA-Public Use
  Company Number: JP-JNJFOC-20140515765

PATIENT
  Age: 69 Year
  Sex: Female

DRUGS (6)
  1. SOVRIAD [Suspect]
     Indication: PRODUCT USED FOR UNKNOWN INDICATION
     Route: 048
     Dates: start: 20140411
  2. PEGINTRON [Suspect]
     Indication: PRODUCT USED FOR UNKNOWN INDICATION
     Route: 058
     Dates: start: 20140411
  3. REBETOL [Suspect]
     Indication: PRODUCT USED FOR UNKNOWN INDICATION
     Route: 048
     Dates: start: 20140411
  4. THYRADIN [Concomitant]
     Route: 048
     Dates: start: 201209
  5. CLARITHROMYCIN [Concomitant]
     Route: 048
     Dates: start: 201109
  6. CIPROFLOXACIN HYDROCHLORIDE [Concomitant]
     Indication: CYSTITIS
     Route: 065
     Dates: start: 20130407

REACTIONS (1)
  - Cystitis haemorrhagic [Recovered/Resolved]
